FAERS Safety Report 24900271 (Version 2)
Quarter: 2025Q1

REPORT INFORMATION
  Report Type: Spontaneous
  Country: US (occurrence: US)
  Receive Date: 20250129
  Receipt Date: 20250327
  Transmission Date: 20250408
  Serious: Yes (Hospitalization)
  Sender: IPSEN BIOPHARMACEUTICALS, INC.
  Company Number: US-IPSEN Group, Research and Development-2024-24785

PATIENT
  Age: 11 Year
  Sex: Female
  Weight: 25.4 kg

DRUGS (14)
  1. BYLVAY [Suspect]
     Active Substance: ODEVIXIBAT
     Indication: Progressive familial intrahepatic cholestasis
     Dosage: 800 MGC (2 CAPSULES TOTAL) SWALLOWED WHOLE ONCE DAILY
     Route: 048
     Dates: start: 20231219
  2. URSODIOL [Concomitant]
     Active Substance: URSODIOL
     Indication: Cholestasis
     Dates: end: 20241105
  3. PHYTONADIONE [Concomitant]
     Active Substance: PHYTONADIONE
     Indication: Vitamin K deficiency
     Dates: end: 20241105
  4. FERROUS SULFATE [Concomitant]
     Active Substance: FERROUS SULFATE
     Indication: Iron deficiency
     Dates: end: 20241105
  5. BIO D MULSION FORTE [Concomitant]
     Indication: Vitamin D deficiency
     Dates: end: 20241105
  6. AQUA E CONCENTRATE [Concomitant]
     Indication: Vitamin E deficiency
     Dates: end: 20241105
  7. VITAMIN E [Concomitant]
     Active Substance: .ALPHA.-TOCOPHEROL
  8. MYCOPHENOLATE MOFETIL [Concomitant]
     Active Substance: MYCOPHENOLATE MOFETIL
  9. COREG [Concomitant]
     Active Substance: CARVEDILOL
  10. SODIUM BICARBONATE [Concomitant]
     Active Substance: SODIUM BICARBONATE
  11. PREDNISONE [Concomitant]
     Active Substance: PREDNISONE
  12. LANSOPRAZOLE [Concomitant]
     Active Substance: LANSOPRAZOLE
  13. BACTRIM [Concomitant]
     Active Substance: SULFAMETHOXAZOLE\TRIMETHOPRIM
  14. TACROLIMUS [Concomitant]
     Active Substance: TACROLIMUS

REACTIONS (2)
  - Disease progression [Recovering/Resolving]
  - Diarrhoea [Unknown]

NARRATIVE: CASE EVENT DATE: 20241104
